FAERS Safety Report 5539956-2 (Version None)
Quarter: 2007Q4

REPORT INFORMATION
  Report Type: 
  Country: None (occurrence: None)
  Receive Date: 20071208
  Receipt Date: 20070508
  Transmission Date: 20080405
  Serious: No
  Sender: FDA-Public Use
  Company Number: US-AMGEN-KDL223515

PATIENT
  Sex: Female

DRUGS (5)
  1. ENBREL [Suspect]
     Indication: RHEUMATOID ARTHRITIS
     Dates: start: 20060601
  2. VICODIN ES [Concomitant]
  3. LYRICA [Concomitant]
  4. UNKNOWN [Concomitant]
  5. LUNESTA [Concomitant]

REACTIONS (3)
  - INJECTION SITE ERYTHEMA [None]
  - INJECTION SITE PRURITUS [None]
  - INJECTION SITE SWELLING [None]
